FAERS Safety Report 7842991-2 (Version None)
Quarter: 2011Q4

REPORT INFORMATION
  Report Type: 
  Country: None (occurrence: None)
  Receive Date: 20111025
  Receipt Date: 20111012
  Transmission Date: 20120403
  Serious: Yes (Death)
  Sender: FDA-Public Use
  Company Number: JP-ELI_LILLY_AND_COMPANY-JP201110002857

PATIENT
  Age: 38 Year
  Sex: Male

DRUGS (16)
  1. ZYPREXA [Suspect]
     Dosage: UNK
     Route: 048
  2. HALOPERIDOL [Concomitant]
     Dosage: UNK
     Route: 065
  3. VALPROIC ACID [Concomitant]
     Dosage: UNK
     Route: 065
  4. TOLOPELON [Concomitant]
     Dosage: UNK
     Route: 065
  5. SEROQUEL [Concomitant]
     Dosage: UNK
     Route: 065
  6. DORAL [Concomitant]
     Route: 065
  7. TEGRETOL [Concomitant]
     Route: 065
  8. PROMETHAZINE HCL [Concomitant]
     Dosage: UNK
     Route: 065
  9. LEVOMEPROMAZINE MALEATE [Concomitant]
     Route: 065
  10. SLOWHEIM [Concomitant]
     Dosage: UNK
     Route: 065
  11. PROMAZINE HYDROCHLORIDE [Concomitant]
     Dosage: UNK
     Route: 065
  12. TIMIPERONE [Concomitant]
     Dosage: UNK
     Route: 065
  13. PHENOBARBITAL TAB [Concomitant]
     Route: 048
  14. RISPERDAL [Concomitant]
     Dosage: UNK
     Route: 065
  15. CLARITHROMYCIN [Concomitant]
     Dosage: UNK
     Route: 065
  16. LODOPIN [Concomitant]
     Route: 065

REACTIONS (6)
  - BLOOD CREATINE PHOSPHOKINASE INCREASED [None]
  - BODY TEMPERATURE INCREASED [None]
  - ILEUS [None]
  - RESPIRATORY DEPRESSION [None]
  - APALLIC SYNDROME [None]
  - CARDIO-RESPIRATORY ARREST [None]
